FAERS Safety Report 11308709 (Version 3)
Quarter: 2015Q3

REPORT INFORMATION
  Report Type: Spontaneous
  Country: US (occurrence: US)
  Receive Date: 20150724
  Receipt Date: 20150910
  Transmission Date: 20151125
  Serious: Yes (Life-Threatening)
  Sender: FDA-Public Use
  Company Number: CHPA2015US008784

PATIENT
  Sex: Female

DRUGS (2)
  1. ASPIRIN. [Concomitant]
     Active Substance: ASPIRIN
     Indication: ARTHRITIS
     Route: 065
  2. VOLTAREN [Suspect]
     Active Substance: DICLOFENAC SODIUM
     Indication: ARTHRITIS
     Dosage: 1 TO 2 PEA SIZES, QD
     Route: 061
     Dates: start: 2009, end: 20150721

REACTIONS (9)
  - Wrong technique in product usage process [Unknown]
  - Eye irritation [Recovered/Resolved]
  - Arthritis [Not Recovered/Not Resolved]
  - Inappropriate schedule of drug administration [Unknown]
  - Osteoarthritis [Unknown]
  - Nasal discomfort [Unknown]
  - Carpal tunnel syndrome [Unknown]
  - Choking [Recovering/Resolving]
  - Skin burning sensation [Unknown]

NARRATIVE: CASE EVENT DATE: 2009
